FAERS Safety Report 8247263-2 (Version None)
Quarter: 2012Q1

REPORT INFORMATION
  Report Type: 
  Country: None (occurrence: None)
  Receive Date: 20120329
  Receipt Date: 20120329
  Transmission Date: 20120608
  Serious: No
  Sender: FDA-Public Use
  Company Number: None

PATIENT
  Age: 80 Year
  Sex: Female

DRUGS (2)
  1. NITROFURANTOIN [Suspect]
     Dates: start: 20100930, end: 20101003
  2. AMOXICILLIN [Suspect]
     Dates: start: 20101004, end: 20101010

REACTIONS (6)
  - ASPARTATE AMINOTRANSFERASE INCREASED [None]
  - ALANINE AMINOTRANSFERASE INCREASED [None]
  - URINARY TRACT INFECTION [None]
  - BLOOD ALKALINE PHOSPHATASE INCREASED [None]
  - ABDOMINAL DISCOMFORT [None]
  - LIVER DISORDER [None]
